FAERS Safety Report 12243851 (Version 1)
Quarter: 2016Q2

REPORT INFORMATION
  Report Type: Spontaneous
  Country: US (occurrence: US)
  Receive Date: 20160406
  Receipt Date: 20160406
  Transmission Date: 20160815
  Serious: No
  Sender: FDA-Public Use
  Company Number: US-PFIZER INC-2016150479

PATIENT
  Age: 67 Year
  Sex: Female
  Weight: 66 kg

DRUGS (7)
  1. CALCIUM [Concomitant]
     Active Substance: CALCIUM
     Dosage: ABOUT 1/2 TEASPOON, DAILY
  2. LORATADINE. [Concomitant]
     Active Substance: LORATADINE
     Indication: HYPERSENSITIVITY
     Dosage: 1 DF, DAILY
  3. CLONAZEPAM. [Concomitant]
     Active Substance: CLONAZEPAM
     Indication: RELAXATION THERAPY
     Dosage: 0.5 MG, 1-2 AT NIGHT
  4. XELJANZ [Suspect]
     Active Substance: TOFACITINIB CITRATE
     Indication: RHEUMATOID ARTHRITIS
     Dosage: 5 MG, 2X/DAY
     Route: 048
     Dates: start: 2015
  5. ONE A DAY [Concomitant]
     Indication: SUPPLEMENTATION THERAPY
     Dosage: 1 DF, DAILY
  6. VITAMIN D [Concomitant]
     Active Substance: CHOLECALCIFEROL
     Indication: VITAMIN SUPPLEMENTATION
     Dosage: 1000 IU, DAILY
  7. MISOPROSTOL. [Concomitant]
     Active Substance: MISOPROSTOL
     Indication: PROPHYLAXIS
     Dosage: 1 DF, DAILY

REACTIONS (1)
  - Alopecia [Recovered/Resolved]

NARRATIVE: CASE EVENT DATE: 20160221
